FAERS Safety Report 8859625 (Version 1)
Quarter: 2012Q4

REPORT INFORMATION
  Report Type: Report from Study
  Country: DE (occurrence: DE)
  Receive Date: 20121025
  Receipt Date: 20121025
  Transmission Date: 20130627
  Serious: Yes (Hospitalization)
  Sender: FDA-Public Use
  Company Number: DE-ROCHE-1148129

PATIENT
  Sex: Male

DRUGS (8)
  1. RITUXIMAB [Suspect]
     Indication: RHEUMATOID ARTHRITIS
     Route: 065
     Dates: start: 20091023
  2. RITUXIMAB [Suspect]
     Route: 065
     Dates: start: 20100504
  3. MTX [Suspect]
     Indication: RHEUMATOID ARTHRITIS
     Route: 051
     Dates: start: 200703
  4. PREDNISOLON [Concomitant]
     Route: 065
  5. ASS [Concomitant]
     Route: 065
  6. RAMIPRIL [Concomitant]
  7. NOVAMINSULFON [Concomitant]
  8. TILIDINE [Concomitant]

REACTIONS (1)
  - Myocardial infarction [Recovered/Resolved]
